FAERS Safety Report 13191374 (Version 1)
Quarter: 2017Q1

REPORT INFORMATION
  Report Type: Spontaneous
  Country: US (occurrence: US)
  Receive Date: 20170206
  Receipt Date: 20170206
  Transmission Date: 20170428
  Serious: No
  Sender: FDA-Public Use
  Company Number: None

PATIENT
  Age: 32 Year
  Sex: Female
  Weight: 102.6 kg

DRUGS (1)
  1. FRUIT SMOOTHIES [Suspect]
     Active Substance: DIMETHICONE\OCTINOXATE\OXYBENZONE
     Indication: CHAPPED LIPS
     Route: 061
     Dates: start: 20170125, end: 20170203

REACTIONS (2)
  - Oral discomfort [None]
  - Lip pain [None]

NARRATIVE: CASE EVENT DATE: 20170130
